FAERS Safety Report 15890423 (Version 4)
Quarter: 2019Q4

REPORT INFORMATION
  Report Type: Report from Study
  Country: None (occurrence: US)
  Receive Date: 20190130
  Receipt Date: 20191024
  Transmission Date: 20200122
  Serious: Yes (Other)
  Sender: FDA-Public Use
  Company Number: US-ABBVIE-19K-163-2637396-00

PATIENT
  Age: 55 Year
  Sex: Female
  Weight: 135.29 kg

DRUGS (2)
  1. HUMIRA [Suspect]
     Active Substance: ADALIMUMAB
     Indication: PSORIASIS
  2. HUMIRA [Suspect]
     Active Substance: ADALIMUMAB
     Indication: PSORIATIC ARTHROPATHY
     Route: 058

REACTIONS (10)
  - Ulcerative gastritis [Unknown]
  - Oesophagitis [Unknown]
  - Arthralgia [Not Recovered/Not Resolved]
  - Choking [Recovering/Resolving]
  - Post procedural swelling [Unknown]
  - Procedural pain [Unknown]
  - Malaise [Unknown]
  - Abdominal pain upper [Not Recovered/Not Resolved]
  - Parotitis [Unknown]
  - Flatulence [Unknown]

NARRATIVE: CASE EVENT DATE: 201811
